FAERS Safety Report 22121597 (Version 1)
Quarter: 2023Q1

REPORT INFORMATION
  Report Type: Spontaneous
  Country: US (occurrence: None)
  Receive Date: 20230321
  Receipt Date: 20230321
  Transmission Date: 20230417
  Serious: Yes (Disabling)
  Sender: FDA-Public Use
  Company Number: None

PATIENT
  Age: 56 Year
  Sex: Male
  Weight: 105.3 kg

DRUGS (5)
  1. BASAGLAR [Suspect]
     Active Substance: INSULIN GLARGINE
     Indication: Diabetes mellitus
     Dosage: OTHER STRENGTH : 34 UNITS;?FREQUENCY : AT BEDTIME;?QUANTITY: 34 INJECTION(S)?
     Route: 058
     Dates: start: 20230310, end: 20230316
  2. LANTUS [Concomitant]
     Active Substance: INSULIN GLARGINE
  3. TRULICITY [Concomitant]
     Active Substance: DULAGLUTIDE
  4. JARDIANCE [Concomitant]
     Active Substance: EMPAGLIFLOZIN
  5. METFORMIN HYDROCHLORIDE [Concomitant]
     Active Substance: METFORMIN HYDROCHLORIDE

REACTIONS (2)
  - Product substitution issue [None]
  - Blood glucose increased [None]

NARRATIVE: CASE EVENT DATE: 20230310
